FAERS Safety Report 6241468-8 (Version None)
Quarter: 2009Q2

REPORT INFORMATION
  Report Type: 
  Country: None (occurrence: None)
  Receive Date: 20090623
  Receipt Date: 20040322
  Transmission Date: 20091009
  Serious: Yes (Life-Threatening, Hospitalization)
  Sender: FDA-Public Use
  Company Number: ES-ROCHE-343898

PATIENT
  Sex: Female
  Weight: 53.3 kg

DRUGS (36)
  1. DACLIZUMAB [Suspect]
     Dosage: DOSAGE FORM: VIAL. BASELINE VISIT
     Route: 042
     Dates: start: 20030719
  2. DACLIZUMAB [Suspect]
     Dosage: FREQUENCY PER PROTOCOL
     Route: 042
     Dates: start: 20030801, end: 20030915
  3. MYCOPHENOLATE MOFETIL [Suspect]
     Route: 048
     Dates: start: 20030719
  4. MYCOPHENOLATE MOFETIL [Suspect]
     Route: 048
     Dates: start: 20030720
  5. MYCOPHENOLATE MOFETIL [Suspect]
     Route: 048
     Dates: start: 20030721
  6. MYCOPHENOLATE MOFETIL [Suspect]
     Route: 048
     Dates: start: 20031029
  7. MYCOPHENOLATE MOFETIL [Suspect]
     Route: 048
     Dates: start: 20031119
  8. MYCOPHENOLATE MOFETIL [Suspect]
     Route: 048
     Dates: start: 20040205
  9. TACROLIMUS [Suspect]
     Route: 048
     Dates: start: 20030719, end: 20031118
  10. TACROLIMUS [Suspect]
     Route: 048
     Dates: start: 20031119, end: 20040719
  11. TACROLIMUS [Suspect]
     Route: 048
     Dates: start: 20040720
  12. TACROLIMUS [Suspect]
     Route: 048
     Dates: start: 20041118
  13. TACROLIMUS [Suspect]
     Route: 048
     Dates: start: 20050127
  14. TACROLIMUS [Suspect]
     Route: 048
     Dates: start: 20050603
  15. PREDNISONE [Suspect]
     Dosage: FORMULATION: VIAL
     Route: 042
     Dates: start: 20030720, end: 20030721
  16. PREDNISONE [Suspect]
     Route: 048
     Dates: start: 20030115
  17. PREDNISONE [Suspect]
     Route: 048
     Dates: start: 20030722, end: 20040204
  18. PREDNISONE [Suspect]
     Route: 048
     Dates: start: 20040205
  19. PREDNISONE [Suspect]
     Route: 048
     Dates: start: 20050224
  20. PREDNISONE [Suspect]
     Route: 048
     Dates: start: 20050722
  21. METHYLPREDNISOLONE [Suspect]
     Route: 042
     Dates: start: 20030719, end: 20030719
  22. METHYLPREDNISOLONE [Suspect]
     Route: 042
     Dates: start: 20030720, end: 20030721
  23. AUGMENTIN '125' [Concomitant]
     Dosage: FORMULATION: VIAL
     Route: 042
     Dates: start: 20030719, end: 20030722
  24. AUGMENTIN '125' [Concomitant]
     Route: 042
     Dates: start: 20030730, end: 20030804
  25. AUGMENTIN [Concomitant]
     Route: 048
     Dates: start: 20030804, end: 20030808
  26. AUGMENTIN [Concomitant]
     Route: 048
     Dates: start: 20030808, end: 20030814
  27. RANUBER [Concomitant]
     Route: 048
     Dates: start: 20030722
  28. BISOPROLOL [Concomitant]
     Route: 048
     Dates: start: 20040422, end: 20040720
  29. FERO-GRADUMET [Concomitant]
     Route: 048
  30. ACYCLOVIR [Concomitant]
     Dosage: FORMULATION: VIAL
     Route: 042
     Dates: start: 20040130, end: 20040204
  31. AZTREONAM [Concomitant]
     Dosage: FORMULATION: VIAL
     Route: 042
     Dates: start: 20030719, end: 20030721
  32. AZTREONAM [Concomitant]
     Route: 042
     Dates: start: 20031030, end: 20031103
  33. CIPROFLOXACIN HCL [Concomitant]
     Route: 048
     Dates: start: 20031103, end: 20031115
  34. DARBEPOETIN ALFA [Concomitant]
     Dosage: DRUG NAME: DARBEPOETINE
     Route: 058
     Dates: start: 20030802
  35. DARBEPOETIN ALFA [Concomitant]
     Dosage: DRUG NAME: DARBEPOETINE
     Route: 048
     Dates: end: 20030808
  36. OMEPRAZOL [Concomitant]
     Route: 048
     Dates: start: 20030808

REACTIONS (6)
  - BLOOD CREATININE INCREASED [None]
  - PYELONEPHRITIS ACUTE [None]
  - PYREXIA [None]
  - RENAL ARTERY STENOSIS [None]
  - RENAL IMPAIRMENT [None]
  - VARICELLA [None]
